FAERS Safety Report 11694264 (Version 1)
Quarter: 2015Q4

REPORT INFORMATION
  Report Type: Report from Study
  Country: US (occurrence: US)
  Receive Date: 20151103
  Receipt Date: 20151103
  Transmission Date: 20160304
  Serious: Yes (Death, Hospitalization, Other)
  Sender: FDA-Public Use
  Company Number: US-CELGENE-163-FK228-10071394

PATIENT
  Age: 51 Year
  Sex: Male
  Weight: 101.24 kg

DRUGS (8)
  1. DEXAMETHASONE. [Concomitant]
     Active Substance: DEXAMETHASONE
     Indication: PRODUCT USED FOR UNKNOWN INDICATION
     Route: 041
  2. ONDANSETRON [Concomitant]
     Active Substance: ONDANSETRON
     Indication: PRODUCT USED FOR UNKNOWN INDICATION
     Route: 041
  3. ROMIDEPSIN [Suspect]
     Active Substance: ROMIDEPSIN
     Indication: NON-SMALL CELL LUNG CANCER
     Route: 041
     Dates: start: 20100208, end: 20100614
  4. ROMIDEPSIN [Suspect]
     Active Substance: ROMIDEPSIN
     Dosage: 400 MILLIGRAM
     Route: 041
  5. GABAPENTIN. [Concomitant]
     Active Substance: GABAPENTIN
     Indication: PRODUCT USED FOR UNKNOWN INDICATION
     Route: 065
     Dates: start: 20091204
  6. LOMOTIL [Concomitant]
     Active Substance: ATROPINE SULFATE\DIPHENOXYLATE HYDROCHLORIDE
     Indication: PRODUCT USED FOR UNKNOWN INDICATION
     Dosage: 150 MILLIGRAM
     Route: 065
     Dates: start: 20100310
  7. ERLOTINIB [Suspect]
     Active Substance: ERLOTINIB
     Indication: NON-SMALL CELL LUNG CANCER
     Route: 048
     Dates: start: 20100210, end: 20100628
  8. ROMIDEPSIN [Suspect]
     Active Substance: ROMIDEPSIN
     Route: 041

REACTIONS (9)
  - Renal tubular necrosis [Fatal]
  - Hypotension [Unknown]
  - Diarrhoea [Unknown]
  - Mental status changes [Unknown]
  - Tachycardia [Recovered/Resolved]
  - Nausea [Unknown]
  - Vomiting [Unknown]
  - Headache [Unknown]
  - Seizure [Unknown]

NARRATIVE: CASE EVENT DATE: 20100704
